FAERS Safety Report 5876327-3 (Version None)
Quarter: 2008Q3

REPORT INFORMATION
  Report Type: 
  Country: None (occurrence: None)
  Receive Date: 20080910
  Receipt Date: 20080902
  Transmission Date: 20090109
  Serious: Yes (Hospitalization)
  Sender: FDA-Public Use
  Company Number: IT-CELGENEUS-083-21880-08090034

PATIENT
  Sex: Male

DRUGS (13)
  1. REVLIMID [Suspect]
     Indication: MULTIPLE MYELOMA
     Route: 048
     Dates: start: 20080814, end: 20080819
  2. REVLIMID [Suspect]
     Route: 048
     Dates: start: 20080825, end: 20080827
  3. MELPHALAN [Suspect]
     Indication: MULTIPLE MYELOMA
     Route: 065
  4. PREDNISONE TAB [Suspect]
     Indication: MULTIPLE MYELOMA
     Route: 065
  5. DEXAMETHASONE [Concomitant]
     Indication: MULTIPLE MYELOMA
     Route: 065
     Dates: start: 20080814
  6. AMOXICLILLIN/CLAVULANIC ACID [Concomitant]
     Indication: DRUG USE FOR UNKNOWN INDICATION
     Route: 051
     Dates: start: 20080806, end: 20080815
  7. LEVOFLOXACIN [Concomitant]
     Indication: DRUG USE FOR UNKNOWN INDICATION
     Route: 048
     Dates: start: 20080805, end: 20080818
  8. LEVOFLOXACIN [Concomitant]
     Route: 048
     Dates: start: 20080805, end: 20080818
  9. ZOLENDRONATE [Concomitant]
     Indication: DRUG USE FOR UNKNOWN INDICATION
     Route: 065
     Dates: start: 20080814, end: 20080814
  10. OMEPRAZOLE [Concomitant]
     Indication: DRUG USE FOR UNKNOWN INDICATION
     Route: 065
     Dates: start: 20080814, end: 20080815
  11. PIPERACILLIN SODIUM AND TAZOBACTAM SODIUM [Concomitant]
     Indication: DRUG USE FOR UNKNOWN INDICATION
     Route: 065
     Dates: start: 20080816, end: 20080819
  12. VANCOMYCIN HYDROCHLORIDE [Concomitant]
     Indication: DRUG USE FOR UNKNOWN INDICATION
     Route: 051
     Dates: start: 20080817, end: 20080818
  13. MORPHINE [Concomitant]
     Indication: DRUG USE FOR UNKNOWN INDICATION
     Route: 058
     Dates: start: 20080730, end: 20080820

REACTIONS (2)
  - CYTOMEGALOVIRUS INFECTION [None]
  - PYREXIA [None]
